FAERS Safety Report 7486362-X (Version None)
Quarter: 2011Q2

REPORT INFORMATION
  Report Type: 
  Country: None (occurrence: None)
  Receive Date: 20110517
  Receipt Date: 20110509
  Transmission Date: 20111010
  Serious: Yes (Hospitalization)
  Sender: FDA-Public Use
  Company Number: PHHY2011GB39528

PATIENT

DRUGS (4)
  1. EPIRUBICIN [Suspect]
     Dosage: 100 MG/M2, QW3
     Route: 042
  2. METHOTREXATE [Concomitant]
     Dosage: 40 MG/M2, UNK
     Route: 042
  3. FLUOROURACIL [Concomitant]
     Dosage: 600 MG/M2, UNK
     Route: 042
  4. CYCLOPHOSPHAMIDE [Concomitant]
     Dosage: 600 MG/M2, UNK
     Route: 042

REACTIONS (4)
  - NERVOUS SYSTEM DISORDER [None]
  - PULMONARY EMBOLISM [None]
  - ISCHAEMIC STROKE [None]
  - DEEP VEIN THROMBOSIS [None]
